FAERS Safety Report 8760735 (Version 1)
Quarter: 2012Q4

REPORT INFORMATION
  Report Type: Report from Study
  Country: US (occurrence: US)
  Receive Date: 20120829
  Receipt Date: 20120829
  Transmission Date: 20130627
  Serious: Yes (Hospitalization)
  Sender: FDA-Public Use
  Company Number: US-ASTELLAS-2011US003434

PATIENT
  Age: 83 Year
  Sex: Female

DRUGS (9)
  1. ERLOTINIB TABLET [Suspect]
     Indication: LUNG NEOPLASM MALIGNANT
     Dosage: 50 mg, UID/QD
     Route: 048
     Dates: start: 20110621
  2. ERLOTINIB TABLET [Suspect]
     Indication: METASTATIC NEOPLASM
     Dosage: 100 mg, UID/QD
     Route: 048
     Dates: start: 20110622
  3. SIMVASTATIN [Concomitant]
     Indication: PRODUCT USED FOR UNKNOWN INDICATION
     Dosage: 10 mg, Unknown/D
     Route: 065
  4. KLOR-CON [Concomitant]
     Indication: PRODUCT USED FOR UNKNOWN INDICATION
     Dosage: 10 mEq, Unknown/D
     Route: 065
  5. EVISTA [Concomitant]
     Indication: PRODUCT USED FOR UNKNOWN INDICATION
     Dosage: 60 mg, Unknown/D
     Route: 065
  6. TRIAMTERENE AND HYDROCHLOROTHIAZIDE [Concomitant]
     Indication: PRODUCT USED FOR UNKNOWN INDICATION
     Dosage: UNK, 37.5-25
     Route: 065
  7. CALCIUM +D [Concomitant]
     Indication: PRODUCT USED FOR UNKNOWN INDICATION
     Dosage: UNK
     Route: 065
  8. MULTIVITAMIN [Concomitant]
     Indication: PRODUCT USED FOR UNKNOWN INDICATION
     Dosage: UNK
     Route: 065
  9. ASPIRIN [Concomitant]
     Indication: PRODUCT USED FOR UNKNOWN INDICATION
     Dosage: 81 mg, Unknown/D
     Route: 065

REACTIONS (3)
  - Incorrect dose administered [Unknown]
  - Hospitalisation [Unknown]
  - Arthropod bite [Unknown]
